FAERS Safety Report 7145057-2 (Version None)
Quarter: 2010Q4

REPORT INFORMATION
  Report Type: 
  Country: None (occurrence: None)
  Receive Date: 20101208
  Receipt Date: 20101124
  Transmission Date: 20110411
  Serious: Yes (Other)
  Sender: FDA-Public Use
  Company Number: PHHY2010CA74050

PATIENT
  Sex: Male

DRUGS (4)
  1. ALISKIREN ALI+ [Suspect]
     Indication: HYPERTENSION
     Dosage: DAILY
     Dates: start: 20091104, end: 20100201
  2. CALCIUM ANTAGONISTS [Concomitant]
  3. COUMADIN [Concomitant]
  4. ACE INHIBITOR NOS [Concomitant]

REACTIONS (2)
  - BRADYCARDIA [None]
  - CARDIAC PACEMAKER INSERTION [None]
